FAERS Safety Report 8509576-6 (Version None)
Quarter: 2012Q3

REPORT INFORMATION
  Report Type: 
  Country: None (occurrence: None)
  Receive Date: 20120703
  Receipt Date: 20120625
  Transmission Date: 20120928
  Serious: Yes (Other)
  Sender: FDA-Public Use
  Company Number: ADR-2012-01177

PATIENT
  Sex: Female

DRUGS (3)
  1. MORPHINE SULFATE [Concomitant]
  2. FENTANYL [Concomitant]
  3. BACLOFEN INTRATHECAL (BACLOFEN INJECTION) [Suspect]
     Indication: PAIN

REACTIONS (5)
  - RESTLESSNESS [None]
  - PERFORMANCE STATUS DECREASED [None]
  - HYPOAESTHESIA [None]
  - FEELING ABNORMAL [None]
  - ASTHENIA [None]
